FAERS Safety Report 25866392 (Version 1)
Quarter: 2025Q3

REPORT INFORMATION
  Report Type: Spontaneous
  Country: CA (occurrence: CA)
  Receive Date: 20250930
  Receipt Date: 20250930
  Transmission Date: 20251020
  Serious: Yes (Hospitalization)
  Sender: MYLAN
  Company Number: CA-MYLANLABS-2025M1083381

PATIENT
  Age: 26 Year
  Sex: Female

DRUGS (12)
  1. DIVALPROEX SODIUM [Interacting]
     Active Substance: DIVALPROEX SODIUM
     Indication: Product used for unknown indication
     Dosage: 500 MILLIGRAM, BID (2 EVERY 1 DAYS)
  2. ATIVAN [Interacting]
     Active Substance: LORAZEPAM
     Indication: Product used for unknown indication
  3. CLOBAZAM [Interacting]
     Active Substance: CLOBAZAM
     Indication: Product used for unknown indication
  4. LEVETIRACETAM [Interacting]
     Active Substance: LEVETIRACETAM
     Indication: Product used for unknown indication
     Dosage: 1500 MILLIGRAM, BID (2 EVERY 1 DAYS)
  5. NAPROXEN [Interacting]
     Active Substance: NAPROXEN
     Indication: Product used for unknown indication
  6. XCOPRI [Interacting]
     Active Substance: CENOBAMATE
     Indication: Epilepsy
     Dosage: 25 MILLIGRAM, QD (1 EVERY 1 DAYS)
  7. XCOPRI [Interacting]
     Active Substance: CENOBAMATE
     Indication: Partial seizures
     Dosage: 150 MILLIGRAM, QD (1 EVERY 1 DAYS)
  8. XCOPRI [Interacting]
     Active Substance: CENOBAMATE
  9. XCOPRI [Interacting]
     Active Substance: CENOBAMATE
     Dosage: 50 MILLIGRAM, QD (EVERY 1 DAYS)
  10. XCOPRI [Interacting]
     Active Substance: CENOBAMATE
     Dosage: 100 MILLIGRAM, QD (1 EVERY 1 DAYS)
  11. XCOPRI [Interacting]
     Active Substance: CENOBAMATE
     Dosage: 200 MILLIGRAM, QD (1 EVERY 1 DAYS)
  12. XCOPRI [Interacting]
     Active Substance: CENOBAMATE
     Dosage: 12.5 MILLIGRAM, QD (1 EVERY 1 DAYS)

REACTIONS (7)
  - Drug level increased [Unknown]
  - Dysstasia [Unknown]
  - Dysarthria [Unknown]
  - Dizziness [Unknown]
  - Accidental overdose [Unknown]
  - Drug interaction [Unknown]
  - Intentional dose omission [Unknown]
